FAERS Safety Report 8701473 (Version 2)
Quarter: 2013Q1

REPORT INFORMATION
  Report Type: Report from Study
  Country: NL (occurrence: NL)
  Receive Date: 20120802
  Receipt Date: 20130222
  Transmission Date: 20140127
  Serious: Yes (Hospitalization)
  Sender: FDA-Public Use
  Company Number: NL-ROCHE-1093422

PATIENT
  Age: 66 Year
  Sex: Female
  Weight: 70 kg

DRUGS (7)
  1. RITUXIMAB [Suspect]
     Indication: DIFFUSE LARGE B-CELL LYMPHOMA
     Dosage: LAST DOSE PRIOR TO SAE: 15/JUN/2012
     Route: 042
     Dates: start: 20120615
  2. PEGFILGRASTIM [Suspect]
     Indication: DIFFUSE LARGE B-CELL LYMPHOMA
     Dosage: LAST DOSE PRIOR TO SAE: 16/JUN/2012
     Route: 058
     Dates: start: 20120616
  3. PREDNISONE [Suspect]
     Indication: DIFFUSE LARGE B-CELL LYMPHOMA
     Dosage: LAST DOSE PRIOR TO SAE: 19/JUN/2012
     Route: 048
     Dates: start: 20120615
  4. CYCLOPHOSPHAMIDE [Suspect]
     Indication: DIFFUSE LARGE B-CELL LYMPHOMA
     Dosage: LAST DOSE PRIOR TO SAE: 15/JUN/2012
     Route: 042
     Dates: start: 20120615
  5. DOXORUBICIN [Suspect]
     Indication: DIFFUSE LARGE B-CELL LYMPHOMA
     Dosage: LAST DOSE PRIOR TO SAE: 15/JUN/2012
     Route: 042
     Dates: start: 20120615
  6. VINCRISTINE [Suspect]
     Indication: DIFFUSE LARGE B-CELL LYMPHOMA
     Dosage: LAST DOSE PRIOR TO SAE: 15/JUN/2012
     Route: 042
     Dates: start: 20120615
  7. CARBASALATE CALCIUM [Suspect]
     Indication: TRANSIENT ISCHAEMIC ATTACK
     Dosage: DATE OF LAST DOSE PRIOR TO SAE: 16/JUL/2012
     Route: 048
     Dates: start: 1995

REACTIONS (1)
  - Pulmonary embolism [Recovered/Resolved with Sequelae]
